FAERS Safety Report 4307573-8 (Version None)
Quarter: 2004Q1

REPORT INFORMATION
  Report Type: 
  Country: None (occurrence: None)
  Receive Date: 20040226
  Receipt Date: 20040226
  Transmission Date: 20041129
  Serious: Yes (Hospitalization)
  Sender: FDA-Public Use
  Company Number: 234538

PATIENT
  Age: 69 Year
  Sex: Male
  Weight: 84.4 kg

DRUGS (5)
  1. NOVOLIN N [Suspect]
     Indication: INSULIN-REQUIRING TYPE II DIABETES MELLITUS
     Dosage: 25 IU, QD, SUBCUTANEOUS;  25 IU, QD,
     Route: 058
     Dates: start: 20020101, end: 20031219
  2. NOVOLIN N [Suspect]
     Indication: INSULIN-REQUIRING TYPE II DIABETES MELLITUS
     Dosage: 25 IU, QD, SUBCUTANEOUS;  25 IU, QD,
     Route: 058
     Dates: start: 20031220
  3. METFORMIN [Concomitant]
  4. GLIPIZIDE [Concomitant]
  5. ZOCOR [Concomitant]

REACTIONS (6)
  - BLOOD GLUCOSE INCREASED [None]
  - COLD SWEAT [None]
  - INJECTION SITE PARAESTHESIA [None]
  - INJECTION SITE SWELLING [None]
  - PHARMACEUTICAL PRODUCT COMPLAINT [None]
  - PRURITUS [None]
